FAERS Safety Report 5901426-7 (Version None)
Quarter: 2008Q3

REPORT INFORMATION
  Report Type: 
  Country: None (occurrence: None)
  Receive Date: 20080929
  Receipt Date: 20080822
  Transmission Date: 20090109
  Serious: No
  Sender: FDA-Public Use
  Company Number: US-BAYER-200830280NA

PATIENT
  Age: 31 Year
  Sex: Female

DRUGS (1)
  1. MIRENA [Suspect]
     Indication: DRUG USE FOR UNKNOWN INDICATION
     Route: 015
     Dates: start: 20080731

REACTIONS (6)
  - BACK PAIN [None]
  - MEDICAL DEVICE COMPLICATION [None]
  - PELVIC PAIN [None]
  - PROCEDURAL PAIN [None]
  - TREMOR [None]
  - VAGINAL DISCHARGE [None]
